FAERS Safety Report 10090975 (Version 1)
Quarter: 2014Q2

REPORT INFORMATION
  Report Type: Spontaneous
  Country: DE (occurrence: DE)
  Receive Date: 20140421
  Receipt Date: 20140421
  Transmission Date: 20141212
  Serious: Yes (Congenital Anomaly, Other)
  Sender: FDA-Public Use
  Company Number: DE-WATSON-2014-07584

PATIENT
  Age: 1 Day
  Sex: Male
  Weight: 4 kg

DRUGS (3)
  1. LAMOTRIGINE (UNKNOWN) [Suspect]
     Indication: EPILEPSY
     Dosage: 100 MG, BID
     Route: 064
     Dates: start: 20120608, end: 20130307
  2. ORFIRIL [Suspect]
     Indication: EPILEPSY
     Dosage: 800 MG, DAILY
     Route: 064
     Dates: start: 20120608, end: 20130307
  3. FOLIC ACID [Concomitant]
     Indication: PROPHYLAXIS OF NEURAL TUBE DEFECT
     Dosage: UNK
     Route: 064

REACTIONS (9)
  - Cardiac septal hypertrophy [Unknown]
  - Neonatal respiratory distress syndrome [Recovered/Resolved]
  - Hypotonia neonatal [Unknown]
  - Agitation neonatal [Recovered/Resolved]
  - Atrial septal defect [Unknown]
  - Microphthalmos [Unknown]
  - Dysmorphism [Not Recovered/Not Resolved]
  - Hypoglycaemia neonatal [Recovered/Resolved]
  - Foetal exposure during pregnancy [Unknown]
